FAERS Safety Report 6143505-8 (Version None)
Quarter: 2009Q2

REPORT INFORMATION
  Report Type: 
  Country: None (occurrence: None)
  Receive Date: 20090401
  Receipt Date: 20090318
  Transmission Date: 20091009
  Serious: Yes (Death)
  Sender: FDA-Public Use
  Company Number: MPS1-1000193

PATIENT
  Age: 10 Year
  Sex: Male

DRUGS (1)
  1. ALDURAZYME [Suspect]
     Indication: MUCOPOLYSACCHARIDOSIS I
     Dosage: 18 MG, 1X/W,
     Dates: start: 20030410, end: 20080918

REACTIONS (2)
  - PNEUMONIA [None]
  - RESPIRATORY FAILURE [None]
